FAERS Safety Report 9648739 (Version 2)
Quarter: 2013Q4

REPORT INFORMATION
  Report Type: Report from Study
  Country: US (occurrence: US)
  Receive Date: 20131028
  Receipt Date: 20131112
  Transmission Date: 20140711
  Serious: Yes (Hospitalization)
  Sender: FDA-Public Use
  Company Number: US-ACTELION-A-NJ2013-90084

PATIENT
  Age: 76 Year
  Sex: Female

DRUGS (28)
  1. TRACLEER [Suspect]
     Indication: PULMONARY ARTERIAL HYPERTENSION
     Dosage: 125 MG, UNK
     Route: 048
     Dates: start: 200506
  2. VITAMIN D [Concomitant]
     Dosage: 50000 U, Q1WEEK
     Dates: start: 2003
  3. IGG [Concomitant]
     Dosage: UNK
     Route: 042
  4. CYMBALTA [Concomitant]
  5. GABAPENTIN [Concomitant]
  6. SULFASALAZINE [Concomitant]
  7. NEXIUM [Concomitant]
  8. ASA [Concomitant]
  9. CARBIDOPA [Concomitant]
  10. SPIRONOLACTONE [Concomitant]
  11. LISINOPRIL [Concomitant]
  12. HYDROCHLOROTHIAZIDE [Concomitant]
  13. SINGULAIR [Concomitant]
  14. AMBIEN [Concomitant]
  15. GAMUNEX [Concomitant]
  16. PLAQUENIL [Concomitant]
  17. REMICADE [Concomitant]
  18. FOLIC ACID [Concomitant]
  19. FISH OIL [Concomitant]
  20. ALLEGRA [Concomitant]
  21. LEVOTHYROXINE [Concomitant]
  22. TRENTAL [Concomitant]
  23. FERROUS SULFATE [Concomitant]
  24. PROTONIX [Concomitant]
  25. ACTON [Concomitant]
  26. MAGNESIUM OXIDE [Concomitant]
  27. HYDROCODONE [Concomitant]
  28. APAP [Concomitant]

REACTIONS (13)
  - Sepsis [Recovered/Resolved]
  - Dehydration [Recovering/Resolving]
  - Blood magnesium decreased [Recovered/Resolved]
  - Urinary retention [Not Recovered/Not Resolved]
  - Hydronephrosis [Not Recovered/Not Resolved]
  - Renal artery stent placement [Not Recovered/Not Resolved]
  - Nausea [Unknown]
  - Vomiting [Recovered/Resolved]
  - Diarrhoea [Recovered/Resolved]
  - Hypovolaemia [Recovered/Resolved]
  - Urinary tract infection [Recovered/Resolved]
  - Blood sodium decreased [Recovered/Resolved]
  - Blood potassium decreased [Recovered/Resolved]
